FAERS Safety Report 8988724 (Version 2)
Quarter: 2013Q1

REPORT INFORMATION
  Report Type: Spontaneous
  Country: US (occurrence: US)
  Receive Date: 20121228
  Receipt Date: 20130315
  Transmission Date: 20140127
  Serious: Yes (Death)
  Sender: FDA-Public Use
  Company Number: US-CELGENEUS-163-21880-12122917

PATIENT
  Sex: Male

DRUGS (5)
  1. REVLIMID [Suspect]
     Indication: LYMPHOMA
     Dosage: 25 MILLIGRAM
     Route: 048
     Dates: start: 201207, end: 201209
  2. DEXAMETHASONE [Concomitant]
     Indication: PRODUCT USED FOR UNKNOWN INDICATION
     Dosage: 4 MILLIGRAM
     Route: 048
  3. OXYCODONE [Concomitant]
     Indication: PAIN
     Dosage: 20 MILLIGRAM
     Route: 048
  4. OXYCONTIN [Concomitant]
     Indication: PAIN
     Dosage: 80 MILLIGRAM
     Route: 048
  5. FENTANYL [Concomitant]
     Indication: PAIN
     Dosage: 100 MILLIGRAM
     Route: 065

REACTIONS (1)
  - Lymphoma [Fatal]
